FAERS Safety Report 13877297 (Version 1)
Quarter: 2017Q3

REPORT INFORMATION
  Report Type: Spontaneous
  Country: ES (occurrence: ES)
  Receive Date: 20170817
  Receipt Date: 20170817
  Transmission Date: 20171127
  Serious: Yes (Hospitalization, Other)
  Sender: FDA-Public Use
  Company Number: ES-JNJFOC-20170810235

PATIENT
  Age: 86 Year
  Sex: Female

DRUGS (4)
  1. BROMAZEPAM [Interacting]
     Active Substance: BROMAZEPAM
     Indication: MIXED DEMENTIA
     Route: 048
  2. RISPERDAL [Suspect]
     Active Substance: RISPERIDONE
     Indication: MIXED DEMENTIA
     Dosage: 0.5-0-0.75
     Route: 048
     Dates: start: 20160823
  3. BROMAZEPAM [Interacting]
     Active Substance: BROMAZEPAM
     Indication: MIXED DEMENTIA
     Dosage: 0-0-1
     Route: 048
     Dates: start: 2016
  4. RISPERDAL [Suspect]
     Active Substance: RISPERIDONE
     Indication: MIXED DEMENTIA
     Route: 048

REACTIONS (3)
  - Depressed level of consciousness [Recovering/Resolving]
  - Drug interaction [Recovering/Resolving]
  - Infected skin ulcer [Unknown]

NARRATIVE: CASE EVENT DATE: 201703
